FAERS Safety Report 20387398 (Version 11)
Quarter: 2022Q2

REPORT INFORMATION
  Report Type: Report from Study
  Country: CH (occurrence: CH)
  Receive Date: 20220127
  Receipt Date: 20220621
  Transmission Date: 20220721
  Serious: Yes (Congenital Anomaly, Other)
  Sender: FDA-Public Use
  Company Number: CH-ABBVIE-21K-151-4175252-00

PATIENT
  Sex: Male
  Weight: 72 kg

DRUGS (14)
  1. CARBIDOPA\LEVODOPA [Suspect]
     Active Substance: CARBIDOPA\LEVODOPA
     Indication: Parkinson^s disease
     Route: 050
     Dates: start: 20210210, end: 2021
  2. CARBIDOPA\LEVODOPA [Suspect]
     Active Substance: CARBIDOPA\LEVODOPA
     Dosage: 16H THERAPY?MD 6.0 ML, CRD 5.5 ML/H, CRN 0 ML/H, ED 1.0 ML
     Route: 050
     Dates: start: 20210702, end: 20210730
  3. CARBIDOPA\LEVODOPA [Suspect]
     Active Substance: CARBIDOPA\LEVODOPA
     Dosage: 16H THERAPY?MD 6.0 ML, CRD 5.5 ML/H, CRN 0 ML/H, ED 1.0 ML
     Route: 050
     Dates: start: 20210730, end: 20211008
  4. CARBIDOPA\LEVODOPA [Suspect]
     Active Substance: CARBIDOPA\LEVODOPA
     Dosage: 16H THERAPY?MD 6.0 ML, CRD 5.1 ML/H, CRN 0 ML/H, ED 1.0 ML
     Route: 050
     Dates: start: 20211010, end: 20211118
  5. CARBIDOPA\LEVODOPA [Suspect]
     Active Substance: CARBIDOPA\LEVODOPA
     Dosage: 16H THERAPY?MD 4.0 ML, CRD 4.7 ML/H, CRN 0 ML/H, ED 1.0 ML
     Route: 050
     Dates: start: 20211118
  6. CARBIDOPA\LEVODOPA [Suspect]
     Active Substance: CARBIDOPA\LEVODOPA
     Dosage: 16H THERAPY?MD 4.0 ML, CRD: 4.7 ML/H, CRN 0 ML/H, ED 0 ML
     Route: 050
     Dates: end: 20220121
  7. CARBIDOPA\LEVODOPA [Suspect]
     Active Substance: CARBIDOPA\LEVODOPA
     Dosage: 16H THERAPY?MD 4.0 ML, CRD 4.7 ML/H, CRN 0 ML/H, ED 1 ML
     Route: 050
     Dates: start: 20220121, end: 20220204
  8. CARBIDOPA\LEVODOPA [Suspect]
     Active Substance: CARBIDOPA\LEVODOPA
     Dosage: MD 3.0 ML, CRD 4.3 ML/H, CRN 0 ML/H, ED 1 ML?16H THERAPY
     Route: 050
     Dates: start: 20220204, end: 20220412
  9. CARBIDOPA\LEVODOPA [Suspect]
     Active Substance: CARBIDOPA\LEVODOPA
     Dosage: MD: 2.0 ML, CRD: 4.3 ML/H, CRN: 0 ML/H, ED: 1 ML?16H THERAPY
     Route: 050
     Dates: start: 20220412, end: 20220413
  10. CARBIDOPA\LEVODOPA [Suspect]
     Active Substance: CARBIDOPA\LEVODOPA
     Dosage: MD: 3.0 ML, CRD: 4.1 ML/H, CRN: 0 ML/H, ED: 0.5 ML
     Route: 050
     Dates: start: 20220413, end: 2022
  11. CARBIDOPA\LEVODOPA [Suspect]
     Active Substance: CARBIDOPA\LEVODOPA
     Dosage: MD: 3.0 ML, CRD: UNKNOWN REDUCTION FROM 4.1 ML/H, CRN: 0 ML/H, ED: 0.5 ML, 16H THERAPY
     Route: 050
     Dates: start: 2022
  12. COVID-19 VACCINE [Concomitant]
     Indication: COVID-19 immunisation
     Dosage: 1ST VACCINE
     Route: 030
     Dates: start: 2021, end: 2021
  13. COVID-19 VACCINE [Concomitant]
     Dosage: 2ND VACCINE
     Route: 030
     Dates: start: 202112, end: 202112
  14. BENSERAZIDE HYDROCHLORIDE\LEVODOPA [Concomitant]
     Active Substance: BENSERAZIDE HYDROCHLORIDE\LEVODOPA
     Indication: Product used for unknown indication
     Dosage: 0.5 TABLET ONCE
     Route: 048
     Dates: start: 20220301, end: 20220301

REACTIONS (25)
  - Deafness unilateral [Unknown]
  - Device issue [Recovered/Resolved]
  - Intentional medical device removal by patient [Recovered/Resolved]
  - Device issue [Recovered/Resolved]
  - Device placement issue [Recovered/Resolved]
  - Underdose [Recovered/Resolved]
  - Nocturia [Recovering/Resolving]
  - Mobility decreased [Unknown]
  - Condition aggravated [Unknown]
  - Extra dose administered [Unknown]
  - Limb discomfort [Unknown]
  - Medication error [Recovered/Resolved]
  - Micturition urgency [Unknown]
  - Bowel movement irregularity [Unknown]
  - Patient dissatisfaction with treatment [Unknown]
  - Weight decreased [Unknown]
  - Fall [Unknown]
  - Overdose [Recovered/Resolved]
  - Hyperkinesia [Unknown]
  - Dyskinesia [Not Recovered/Not Resolved]
  - Therapeutic product effect incomplete [Unknown]
  - Freezing phenomenon [Unknown]
  - Dyskinesia [Recovered/Resolved]
  - Stoma site pruritus [Not Recovered/Not Resolved]
  - Stoma site erythema [Not Recovered/Not Resolved]

NARRATIVE: CASE EVENT DATE: 20210101
